FAERS Safety Report 18300888 (Version 1)
Quarter: 2020Q3

REPORT INFORMATION
  Report Type: Spontaneous
  Country: US (occurrence: US)
  Receive Date: 20200923
  Receipt Date: 20200923
  Transmission Date: 20201103
  Serious: No
  Sender: FDA-Public Use
  Company Number: None

PATIENT
  Age: 28 Year
  Weight: 69.75 kg

DRUGS (5)
  1. METHYLPHENIDATE ER 18MG TAB (GENERIC FOR CONCERTA) [Suspect]
     Active Substance: METHYLPHENIDATE HYDROCHLORIDE
     Indication: ATTENTION DEFICIT HYPERACTIVITY DISORDER
     Dosage: ?          QUANTITY:30 TABLET(S);?
     Route: 048
     Dates: start: 20200821
  2. BUSPAR [Concomitant]
     Active Substance: BUSPIRONE HYDROCHLORIDE
  3. GUANFACINE. [Concomitant]
     Active Substance: GUANFACINE
  4. TESTOSTERONE CYPIONATE. [Concomitant]
     Active Substance: TESTOSTERONE CYPIONATE
  5. METHYLPHENIDATE ER [Concomitant]
     Active Substance: METHYLPHENIDATE

REACTIONS (3)
  - Fatigue [None]
  - Sluggishness [None]
  - Drug ineffective [None]

NARRATIVE: CASE EVENT DATE: 20200901
